FAERS Safety Report 6376759-3 (Version None)
Quarter: 2009Q3

REPORT INFORMATION
  Report Type: 
  Country: None (occurrence: None)
  Receive Date: 20090925
  Receipt Date: 20090917
  Transmission Date: 20100115
  Serious: Yes (Death, Hospitalization, Other)
  Sender: FDA-Public Use
  Company Number: JP-BAYER-200912734BYL

PATIENT
  Age: 49 Year
  Sex: Male
  Weight: 55 kg

DRUGS (10)
  1. NEXAVAR [Suspect]
     Indication: HEPATIC NEOPLASM MALIGNANT
     Dosage: TOTAL DAILY DOSE: 800 MG  UNIT DOSE: 200 MG
     Route: 048
     Dates: start: 20090601, end: 20090630
  2. NEXAVAR [Suspect]
     Dosage: TOTAL DAILY DOSE: 400 MG  UNIT DOSE: 200 MG
     Route: 048
     Dates: start: 20090728
  3. URSO 250 [Concomitant]
     Dosage: BEFORE NEXAVAR ADMINISTRASION
     Route: 048
  4. ENTOMOL [Concomitant]
     Dosage: BEFORE NEXAVAR ADMINISTRASION
     Route: 048
  5. OMEPRAL [Concomitant]
     Dosage: BEFORE NEXAVAR ADMINISTRASION
     Route: 048
  6. LASIX [Concomitant]
     Dosage: BEFORE NEXAVAR ADMINISTRASION
     Route: 048
  7. KAYTWO [Concomitant]
     Dosage: BEFORE NEXAVAR ADMINISTRASION
     Route: 048
  8. ZEFIX [Concomitant]
     Dosage: BEFORE NEXAVAR ADMINISTRASION
     Route: 048
  9. PROGRAF [Concomitant]
     Dosage: BEFORE NEXAVAR ADMINISTRASION
     Route: 048
  10. MEDROL [Concomitant]
     Dosage: BEFORE NEXAVAR ADMINISTRASION
     Route: 048

REACTIONS (15)
  - ALOPECIA [None]
  - ANAEMIA [None]
  - ARRHYTHMIA [None]
  - BLOOD CREATININE INCREASED [None]
  - BLOOD SODIUM DECREASED [None]
  - DECREASED APPETITE [None]
  - DEHYDRATION [None]
  - DYSGEUSIA [None]
  - ELECTROLYTE IMBALANCE [None]
  - HAEMOGLOBIN DECREASED [None]
  - HYPERTENSION [None]
  - MALAISE [None]
  - MUSCULOSKELETAL PAIN [None]
  - PALMAR-PLANTAR ERYTHRODYSAESTHESIA SYNDROME [None]
  - RENAL FAILURE [None]
